FAERS Safety Report 14371950 (Version 1)
Quarter: 2018Q1

REPORT INFORMATION
  Report Type: Spontaneous
  Country: US (occurrence: US)
  Receive Date: 20180109
  Receipt Date: 20180109
  Transmission Date: 20180509
  Serious: Yes (Disabling)
  Sender: FDA-Public Use
  Company Number: None

PATIENT
  Age: 57 Year
  Sex: Male
  Weight: 81 kg

DRUGS (6)
  1. ATORVASTATIN [Concomitant]
     Active Substance: ATORVASTATIN
  2. VITAMIN D [Concomitant]
     Active Substance: CHOLECALCIFEROL
  3. VIAGRA [Suspect]
     Active Substance: SILDENAFIL CITRATE
     Indication: ERECTILE DYSFUNCTION
     Dosage: ?          QUANTITY:1 TABLET(S);?
     Route: 048
  4. IRBESARTAN. [Concomitant]
     Active Substance: IRBESARTAN
  5. METOPROLOL. [Concomitant]
     Active Substance: METOPROLOL
  6. PANTOPRAZOL [Concomitant]
     Active Substance: PANTOPRAZOLE SODIUM

REACTIONS (1)
  - Optic ischaemic neuropathy [None]

NARRATIVE: CASE EVENT DATE: 20170316
